FAERS Safety Report 7863241-7 (Version None)
Quarter: 2011Q4

REPORT INFORMATION
  Report Type: 
  Country: None (occurrence: None)
  Receive Date: 20111027
  Receipt Date: 20101130
  Transmission Date: 20120403
  Serious: No
  Sender: FDA-Public Use
  Company Number: US-AMGEN-USASP2010006910

PATIENT
  Age: 28 Year
  Sex: Female

DRUGS (1)
  1. ENBREL [Suspect]
     Indication: RHEUMATOID ARTHRITIS
     Dates: start: 20100901

REACTIONS (10)
  - MOBILITY DECREASED [None]
  - RHINORRHOEA [None]
  - HEADACHE [None]
  - INJECTION SITE ERYTHEMA [None]
  - UPPER RESPIRATORY TRACT CONGESTION [None]
  - COUGH [None]
  - INJECTION SITE PAIN [None]
  - BACK PAIN [None]
  - OROPHARYNGEAL PAIN [None]
  - INJECTION SITE URTICARIA [None]
